FAERS Safety Report 24122879 (Version 1)
Quarter: 2024Q3

REPORT INFORMATION
  Report Type: Report from Study
  Country: JP (occurrence: JP)
  Receive Date: 20240723
  Receipt Date: 20240723
  Transmission Date: 20241016
  Serious: Yes (Hospitalization, Other)
  Sender: GLAXOSMITHKLINE
  Company Number: JP-GSK-JP2023JPN053586

PATIENT

DRUGS (35)
  1. MEPOLIZUMAB [Suspect]
     Active Substance: MEPOLIZUMAB
     Indication: Eosinophilic granulomatosis with polyangiitis
     Dosage: 300 MG, Q4W
     Dates: start: 20221031, end: 20230323
  2. MEPOLIZUMAB [Suspect]
     Active Substance: MEPOLIZUMAB
     Dosage: 300 MG, Q6W
     Dates: start: 20230501, end: 20230501
  3. MEPOLIZUMAB [Suspect]
     Active Substance: MEPOLIZUMAB
     Dosage: 300 MG, Q4W
     Dates: start: 20230605
  4. PREDNISOLONE [Concomitant]
     Active Substance: PREDNISOLONE
     Indication: Eosinophilic granulomatosis with polyangiitis
     Dosage: 10 MG
     Route: 048
     Dates: end: 20221128
  5. PREDNISOLONE [Concomitant]
     Active Substance: PREDNISOLONE
     Dosage: 9.5 MG
     Route: 048
     Dates: start: 20221129, end: 20221226
  6. PREDNISOLONE [Concomitant]
     Active Substance: PREDNISOLONE
     Dosage: 9 MG, QD
     Route: 048
     Dates: start: 20221227, end: 20230220
  7. PREDNISOLONE [Concomitant]
     Active Substance: PREDNISOLONE
     Dosage: 8.5 MG, QD
     Route: 048
     Dates: start: 20230221, end: 20230501
  8. PREDNISOLONE [Concomitant]
     Active Substance: PREDNISOLONE
     Dosage: 8 MG, QD
     Route: 048
     Dates: start: 20230502, end: 20230605
  9. PREDNISOLONE [Concomitant]
     Active Substance: PREDNISOLONE
     Dosage: 7.5 MG, QD
     Route: 048
     Dates: start: 20230606, end: 20230703
  10. PREDNISOLONE [Concomitant]
     Active Substance: PREDNISOLONE
     Dosage: 7 MG, QD
     Route: 048
     Dates: start: 20230704, end: 20230807
  11. PREDNISOLONE [Concomitant]
     Active Substance: PREDNISOLONE
     Dosage: 6 MG, QD
     Route: 048
     Dates: start: 20230808, end: 20230904
  12. PREDNISOLONE [Concomitant]
     Active Substance: PREDNISOLONE
     Dosage: 5.5 MG, QD
     Route: 048
     Dates: start: 20230905, end: 20231002
  13. PREDNISOLONE [Concomitant]
     Active Substance: PREDNISOLONE
     Dosage: 5 MG, QD
     Route: 048
     Dates: start: 20231003
  14. LANSOPRAZOLE [Concomitant]
     Active Substance: LANSOPRAZOLE
     Dosage: UNK
  15. SITAGLIPTIN [Concomitant]
     Active Substance: SITAGLIPTIN
     Dosage: UNK
  16. JARDIANCE [Concomitant]
     Active Substance: EMPAGLIFLOZIN
     Dosage: UNK
  17. MAGNESIUM OXIDE [Concomitant]
     Active Substance: MAGNESIUM OXIDE
     Dosage: UNK
  18. PREGABALIN [Concomitant]
     Active Substance: PREGABALIN
     Indication: Eosinophilic granulomatosis with polyangiitis
     Dosage: UNK
  19. REBAMIPIDE [Concomitant]
     Active Substance: REBAMIPIDE
     Indication: Gastrointestinal disorder prophylaxis
     Dosage: UNK
  20. POLAPREZINC [Concomitant]
     Active Substance: POLAPREZINC
     Dosage: UNK
  21. ELIQUIS [Concomitant]
     Active Substance: APIXABAN
     Dosage: UNK
  22. BIO-THREE [Concomitant]
     Active Substance: HERBALS
     Indication: Diarrhoea
     Dosage: UNK
  23. BIO-THREE [Concomitant]
     Active Substance: HERBALS
     Dosage: UNK
     Dates: start: 20230219, end: 20230323
  24. BELSOMRA [Concomitant]
     Active Substance: SUVOREXANT
     Dosage: UNK
  25. ROZEREM [Concomitant]
     Active Substance: RAMELTEON
     Dosage: UNK
  26. RAMELTEON [Concomitant]
     Active Substance: RAMELTEON
     Dosage: UNK
  27. SILODOSIN [Concomitant]
     Active Substance: SILODOSIN
     Dosage: UNK
  28. BETHANECHOL CHLORIDE [Concomitant]
     Active Substance: BETHANECHOL CHLORIDE
     Dosage: UNK
  29. SODIUM PICOSULFATE [Concomitant]
     Active Substance: SODIUM PICOSULFATE
     Dosage: UNK
  30. LINZESS [Concomitant]
     Active Substance: LINACLOTIDE
     Dosage: UNK
     Dates: end: 20230223
  31. LINZESS [Concomitant]
     Active Substance: LINACLOTIDE
     Dosage: UNK
     Dates: start: 20230309
  32. SENNOSIDES [Concomitant]
     Active Substance: SENNOSIDES
     Indication: Colonoscopy
     Dosage: UNK
  33. POLYETHYLENE GLYCOLS\POTASSIUM CHLORIDE\SODIUM BICARBONATE\SODIUM CHLO [Concomitant]
     Active Substance: POLYETHYLENE GLYCOLS\POTASSIUM CHLORIDE\SODIUM BICARBONATE\SODIUM CHLORIDE\SODIUM SULFATE
     Indication: Colonoscopy
     Dosage: UNK
  34. AMINO ACIDS\DEXTROSE\ELECTROLYTES NOS\VITAMINS [Concomitant]
     Active Substance: AMINO ACIDS\DEXTROSE\ELECTROLYTES NOS\VITAMINS
     Indication: Colonoscopy
     Dosage: UNK
  35. CALCIUM CHLORIDE ANHYDROUS\POTASSIUM CHLORIDE\SODIUM CHLORIDE\SODIUM L [Concomitant]
     Active Substance: CALCIUM CHLORIDE ANHYDROUS\POTASSIUM CHLORIDE\SODIUM CHLORIDE\SODIUM LACTATE
     Indication: Colonoscopy
     Dosage: UNK

REACTIONS (13)
  - Pneumonia [Recovered/Resolved]
  - Cardiac failure [Recovering/Resolving]
  - Diarrhoea [Recovered/Resolved]
  - Large intestine polyp [Recovered/Resolved]
  - Aspartate aminotransferase increased [Recovered/Resolved]
  - Alanine aminotransferase increased [Recovered/Resolved]
  - Nasopharyngitis [Recovered/Resolved]
  - Nasopharyngitis [Recovered/Resolved]
  - Haemorrhoids [Recovering/Resolving]
  - Skin erosion [Recovered/Resolved]
  - Vulvar erosion [Recovered/Resolved]
  - Inappropriate schedule of product administration [Unknown]
  - Off label use [Unknown]

NARRATIVE: CASE EVENT DATE: 20230113
